FAERS Safety Report 24112893 (Version 1)
Quarter: 2024Q3

REPORT INFORMATION
  Report Type: Spontaneous
  Country: US (occurrence: US)
  Receive Date: 20240719
  Receipt Date: 20240719
  Transmission Date: 20241016
  Serious: No
  Sender: UPSHER-SMITH
  Company Number: US-UPSHER-SMITH LABORATORIES, LLC-2023USL00941

PATIENT
  Age: 64 Year
  Sex: Male
  Weight: 77.098 kg

DRUGS (5)
  1. TESTOSTERONE [Suspect]
     Active Substance: TESTOSTERONE
     Dosage: 100 MG, 1X/DAY ON UPPER ARMS AND SHOULDER
     Route: 061
     Dates: start: 20231108
  2. VITAMIN D NOS [Concomitant]
     Active Substance: CHOLECALCIFEROL\ERGOCALCIFEROL
  3. VITAMIN B [Concomitant]
     Active Substance: VITAMIN B
  4. FISH OIL [Concomitant]
     Active Substance: FISH OIL
  5. NEO 40 [Concomitant]

REACTIONS (1)
  - Discomfort [Not Recovered/Not Resolved]

NARRATIVE: CASE EVENT DATE: 20231108
